FAERS Safety Report 5903782-2 (Version None)
Quarter: 2008Q3

REPORT INFORMATION
  Report Type: 
  Country: None (occurrence: None)
  Receive Date: 20080919
  Receipt Date: 20080725
  Transmission Date: 20090109
  Serious: Yes (Other)
  Sender: FDA-Public Use
  Company Number: US-WYE-H05280808

PATIENT
  Age: 17 Year
  Sex: Female
  Weight: 61.29 kg

DRUGS (2)
  1. PRISTIQ [Suspect]
     Indication: ANXIETY
     Dosage: 50 MG 1X PER 1 DAY, ORAL
     Route: 048
     Dates: start: 20080723
  2. LEXAPRO [Suspect]
     Indication: ANXIETY
     Dosage: 20 MG 1X PER 1 DAY

REACTIONS (1)
  - PALPITATIONS [None]
